FAERS Safety Report 7595634-X (Version None)
Quarter: 2011Q3

REPORT INFORMATION
  Report Type: 
  Country: None (occurrence: None)
  Receive Date: 20110707
  Receipt Date: 20110628
  Transmission Date: 20111222
  Serious: Yes (Hospitalization)
  Sender: FDA-Public Use
  Company Number: PHHY2011IT57353

PATIENT
  Sex: Female

DRUGS (7)
  1. LACTULOSE [Concomitant]
  2. ALLOPURINOL [Concomitant]
  3. POTASSION [Concomitant]
     Dosage: UNK
  4. FUROSEMIDE [Suspect]
     Dosage: 25 MG, UNK
     Route: 048
     Dates: start: 20110101, end: 20110617
  5. LORAZEPAM [Concomitant]
     Dosage: UNK
  6. ESOMEPRAZOLE MAGNESIUM [Concomitant]
  7. NORMAST [Concomitant]
     Dosage: 300 MG, UNK

REACTIONS (4)
  - HYPONATRAEMIA [None]
  - HYPOMAGNESAEMIA [None]
  - HYPOKALAEMIA [None]
  - RENAL FAILURE ACUTE [None]
